FAERS Safety Report 8996350 (Version 2)
Quarter: 2013Q1

REPORT INFORMATION
  Report Type: Spontaneous
  Country: US (occurrence: US)
  Receive Date: 20130104
  Receipt Date: 20130304
  Transmission Date: 20140127
  Serious: Yes (Hospitalization, Other)
  Sender: FDA-Public Use
  Company Number: US-BIOGENIDEC-2012BI047157

PATIENT
  Age: 49 Year
  Sex: Female

DRUGS (15)
  1. TYSABRI [Suspect]
     Indication: MULTIPLE SCLEROSIS
     Route: 042
     Dates: start: 20120719
  2. ACCOLATE [Concomitant]
  3. ADDERALL [Concomitant]
  4. BACLOFEN [Concomitant]
  5. MOTRIN [Concomitant]
  6. IMITREX [Concomitant]
  7. LANSOPRAZOLE [Concomitant]
  8. LISINOPRIL [Concomitant]
  9. MAGNESIUM OXIDE [Concomitant]
  10. SIMVASTATIN [Concomitant]
  11. SYNTHROID [Concomitant]
  12. XANAX [Concomitant]
  13. CYMBALTA [Concomitant]
  14. LASIX [Concomitant]
  15. PRISTIQ [Concomitant]

REACTIONS (7)
  - Follicular thyroid cancer [Unknown]
  - Osteonecrosis [Unknown]
  - Diabetes mellitus [Unknown]
  - Autoimmune thyroiditis [Unknown]
  - Gastrooesophageal reflux disease [Unknown]
  - Anxiety [Unknown]
  - Hyperlipidaemia [Unknown]
